FAERS Safety Report 22173849 (Version 4)
Quarter: 2023Q2

REPORT INFORMATION
  Report Type: Spontaneous
  Country: US (occurrence: US)
  Receive Date: 20230404
  Receipt Date: 20230421
  Transmission Date: 20230722
  Serious: Yes (Other)
  Sender: FDA-Public Use
  Company Number: US-BoehringerIngelheim-2023-BI-229592

PATIENT
  Sex: Male
  Weight: 146.05 kg

DRUGS (1)
  1. JARDIANCE [Suspect]
     Active Substance: EMPAGLIFLOZIN
     Indication: Type 2 diabetes mellitus
     Dates: start: 2022, end: 202303

REACTIONS (1)
  - Fournier^s gangrene [Recovering/Resolving]

NARRATIVE: CASE EVENT DATE: 20230301
